FAERS Safety Report 7399863-X (Version None)
Quarter: 2011Q2

REPORT INFORMATION
  Report Type: 
  Country: None (occurrence: None)
  Receive Date: 20110407
  Receipt Date: 20110404
  Transmission Date: 20111010
  Serious: Yes (Other)
  Sender: FDA-Public Use
  Company Number: DE-PFIZER INC-2011074060

PATIENT
  Age: 47 Year
  Sex: Female

DRUGS (1)
  1. SAYANA [Suspect]
     Dosage: UNK
     Dates: start: 20100101

REACTIONS (1)
  - OSTEOARTHRITIS [None]
